FAERS Safety Report 20179904 (Version 1)
Quarter: 2021Q4

REPORT INFORMATION
  Report Type: Spontaneous
  Country: US (occurrence: None)
  Receive Date: 20211209
  Receipt Date: 20211209
  Transmission Date: 20220303
  Serious: No
  Sender: FDA-Public Use
  Company Number: None

PATIENT
  Age: 61 Year
  Sex: Female
  Weight: 62.6 kg

DRUGS (2)
  1. IVERMECTIN [Suspect]
     Active Substance: IVERMECTIN
  2. FENBENDAZOLE [Suspect]
     Active Substance: FENBENDAZOLE

REACTIONS (1)
  - Pruritus [None]
